FAERS Safety Report 16637741 (Version 1)
Quarter: 2019Q3

REPORT INFORMATION
  Report Type: Spontaneous
  Country: PT (occurrence: PT)
  Receive Date: 20190726
  Receipt Date: 20190726
  Transmission Date: 20191004
  Serious: Yes (Disabling)
  Sender: FDA-Public Use
  Company Number: PT-PFIZER INC-2019317038

PATIENT
  Age: 43 Year
  Sex: Female
  Weight: 60 kg

DRUGS (3)
  1. TAMOXIFEN [Concomitant]
     Active Substance: TAMOXIFEN
     Dosage: 1 DF, 1X/DAY
     Route: 048
  2. GOSERELIN [Concomitant]
     Active Substance: GOSERELIN
     Dosage: 3.6 MG, UNK
     Route: 058
  3. ZOLEDRONIC ACID [Suspect]
     Active Substance: ZOLEDRONIC ACID
     Dosage: 1 DF, SINGLE
     Route: 042
     Dates: start: 20190612

REACTIONS (5)
  - Arthralgia [Recovered/Resolved]
  - Syncope [Recovered/Resolved]
  - Decreased appetite [Recovered/Resolved]
  - Headache [Recovered/Resolved]
  - Bone pain [Recovered/Resolved]

NARRATIVE: CASE EVENT DATE: 20190612
